FAERS Safety Report 8524599-9 (Version None)
Quarter: 2012Q3

REPORT INFORMATION
  Report Type: 
  Country: None (occurrence: None)
  Receive Date: 20120720
  Receipt Date: 20120710
  Transmission Date: 20120928
  Serious: Yes (Other)
  Sender: FDA-Public Use
  Company Number: MW-B.I. PHARMACEUTICALS,INC./RIDGEFIELD-2012-EU-03552GD

PATIENT
  Sex: Female

DRUGS (8)
  1. COMBIVIR [Suspect]
     Indication: HIV INFECTION
     Dosage: 300MG ZIDOVUDINE AND 150MG LAMIVUDINE TWICE A DAY
     Route: 048
  2. ANTIRETROVIRALS [Suspect]
     Indication: HIV INFECTION
  3. NEVIRAPINE [Suspect]
     Indication: HUMAN IMMUNODEFICIENCY VIRUS TRANSMISSION
     Dosage: 200 MG
     Route: 048
  4. NEVIRAPINE [Suspect]
     Indication: PROPHYLAXIS
  5. ANTIRETROVIRALS [Suspect]
     Indication: HUMAN IMMUNODEFICIENCY VIRUS TRANSMISSION
  6. ANTIRETROVIRALS [Suspect]
     Indication: PROPHYLAXIS
  7. COMBIVIR [Suspect]
     Indication: HUMAN IMMUNODEFICIENCY VIRUS TRANSMISSION
     Route: 048
  8. COMBIVIR [Suspect]
     Indication: PROPHYLAXIS

REACTIONS (1)
  - SYPHILIS [None]
